FAERS Safety Report 4701613-X (Version None)
Quarter: 2005Q2

REPORT INFORMATION
  Report Type: 
  Country: None (occurrence: None)
  Receive Date: 20050627
  Receipt Date: 20050610
  Transmission Date: 20051028
  Serious: Yes (Other)
  Sender: FDA-Public Use
  Company Number: ATO-05-0172

PATIENT
  Age: 65 Year
  Sex: Male

DRUGS (3)
  1. TRISENOX [Suspect]
     Indication: ACUTE PROMYELOCYTIC LEUKAEMIA
     Dosage: 9.6 MG (9.6 MG), IVI
     Route: 042
     Dates: start: 20050404, end: 20050408
  2. TRISENOX [Suspect]
     Indication: ACUTE PROMYELOCYTIC LEUKAEMIA
     Dosage: 9.6 MG (9.6 MG), IVI
     Route: 042
     Dates: start: 20050418, end: 20050511
  3. ASPIRIN [Suspect]
     Dosage: 100 MG (100 MG), ORAL
     Route: 048
     Dates: end: 20050511

REACTIONS (7)
  - ATRIAL FIBRILLATION [None]
  - BLOOD UREA INCREASED [None]
  - CATHETER RELATED INFECTION [None]
  - HAEMOGLOBIN DECREASED [None]
  - PROTEIN TOTAL DECREASED [None]
  - SMALL INTESTINAL HAEMORRHAGE [None]
  - URETERIC STENOSIS [None]
